FAERS Safety Report 24543488 (Version 1)
Quarter: 2024Q4

REPORT INFORMATION
  Report Type: Report from Study
  Country: US (occurrence: US)
  Receive Date: 20241024
  Receipt Date: 20241024
  Transmission Date: 20250115
  Serious: Yes (Other)
  Sender: RANBAXY
  Company Number: US-SUN PHARMACEUTICAL INDUSTRIES LTD-2024R1-475171

PATIENT
  Age: 20 Day
  Weight: 3.6 kg

DRUGS (1)
  1. ASPIRIN [Suspect]
     Active Substance: ASPIRIN
     Indication: Systemic-pulmonary artery shunt
     Dosage: 5.6 MILLIGRAM/KILOGRAM
     Route: 065

REACTIONS (1)
  - Pelvic venous thrombosis [Unknown]
